FAERS Safety Report 16615945 (Version 3)
Quarter: 2019Q3

REPORT INFORMATION
  Report Type: Spontaneous
  Country: PL (occurrence: PL)
  Receive Date: 20190723
  Receipt Date: 20190814
  Transmission Date: 20191004
  Serious: Yes (Hospitalization, Other)
  Sender: FDA-Public Use
  Company Number: PHHY2019PL120588

PATIENT
  Age: 23 Year
  Sex: Female

DRUGS (9)
  1. OLANZAPINE. [Suspect]
     Active Substance: OLANZAPINE
     Indication: PSYCHIATRIC SYMPTOM
     Dosage: 10 MG, QD
     Route: 065
  2. ARIPIPRAZOLE. [Suspect]
     Active Substance: ARIPIPRAZOLE
     Indication: PSYCHIATRIC SYMPTOM
     Dosage: 20 MG, QD
     Route: 065
  3. ARIPIPRAZOLE. [Suspect]
     Active Substance: ARIPIPRAZOLE
     Indication: DEPRESSION
     Dosage: 10 MG, THE DOSE OF ARIPIPRAZOLE WAS DECREASED TO 10 MG
     Route: 065
  4. ZINC SULFATE. [Concomitant]
     Active Substance: ZINC SULFATE
     Indication: HEPATO-LENTICULAR DEGENERATION
     Dosage: 160 MG, UNK
     Route: 065
  5. ARIPIPRAZOLE. [Suspect]
     Active Substance: ARIPIPRAZOLE
     Indication: SUICIDAL IDEATION
     Dosage: 10 MG, QD
     Route: 065
  6. OLANZAPINE. [Suspect]
     Active Substance: OLANZAPINE
     Indication: ANXIETY
  7. OLANZAPINE. [Suspect]
     Active Substance: OLANZAPINE
     Indication: SUICIDAL IDEATION
  8. D-PENICILLAMINE [Concomitant]
     Active Substance: PENICILLAMINE
     Indication: HEPATO-LENTICULAR DEGENERATION
     Dosage: UNK
     Route: 065
  9. OLANZAPINE. [Suspect]
     Active Substance: OLANZAPINE
     Indication: DEPRESSION

REACTIONS (8)
  - Neurological decompensation [Recovered/Resolved]
  - Postural tremor [Recovered/Resolved]
  - Head titubation [Recovered/Resolved]
  - Dysphonia [Recovered/Resolved]
  - Product use in unapproved indication [Unknown]
  - Slow speech [Recovered/Resolved]
  - Tremor [Recovered/Resolved]
  - Speech disorder [Recovered/Resolved]
